FAERS Safety Report 23499009 (Version 1)
Quarter: 2024Q1

REPORT INFORMATION
  Report Type: Spontaneous
  Country: GB (occurrence: GB)
  Receive Date: 20240208
  Receipt Date: 20240208
  Transmission Date: 20240409
  Serious: Yes (Life-Threatening)
  Sender: FDA-Public Use
  Company Number: GB-002147023-NVSC2024GB019484

PATIENT
  Sex: Female

DRUGS (2)
  1. PREDNISOLONE [Suspect]
     Active Substance: PREDNISOLONE
     Indication: Product used for unknown indication
     Dosage: 5 MG (28 STRI, FREQUENCY: OD), DOSE FORM: TABLET
     Route: 065
  2. NEORAL [Suspect]
     Active Substance: CYCLOSPORINE
     Indication: Product used for unknown indication
     Dosage: UNK ((CAP 30), DOSE FORM: CAPSULE, SOFT
     Route: 065

REACTIONS (1)
  - Terminal state [Unknown]
